FAERS Safety Report 5222929-7 (Version None)
Quarter: 2007Q1

REPORT INFORMATION
  Report Type: 
  Country: None (occurrence: None)
  Receive Date: 20061208
  Receipt Date: 20060313
  Transmission Date: 20070707
  Serious: Yes (Other)
  Sender: FDA-Public Use
  Company Number: 2006035096

PATIENT
  Age: 37 Year
  Sex: Male
  Weight: 81.6475 kg

DRUGS (2)
  1. VIAGRA [Suspect]
     Indication: ILL-DEFINED DISORDER
     Dates: start: 20050501, end: 20050501
  2. DARVOCET [Concomitant]

REACTIONS (3)
  - ERECTILE DYSFUNCTION [None]
  - ERECTION INCREASED [None]
  - INTENTIONAL DRUG MISUSE [None]
